FAERS Safety Report 11282323 (Version 1)
Quarter: 2015Q3

REPORT INFORMATION
  Report Type: Spontaneous
  Country: IT (occurrence: IT)
  Receive Date: 20150720
  Receipt Date: 20150720
  Transmission Date: 20151125
  Serious: Yes (Death)
  Sender: FDA-Public Use
  Company Number: IT-CIPLA LTD.-2015IT05731

PATIENT

DRUGS (1)
  1. CITALOPRAM [Suspect]
     Active Substance: CITALOPRAM HYDROBROMIDE
     Indication: DEPRESSION
     Dosage: 2880 MG (40 TIMES THE DAILY DOSE)
     Route: 065

REACTIONS (4)
  - Brain oedema [Fatal]
  - Pulmonary oedema [Fatal]
  - Multi-organ disorder [Fatal]
  - Overdose [Fatal]
